FAERS Safety Report 11311062 (Version 1)
Quarter: 2015Q3

REPORT INFORMATION
  Report Type: Spontaneous
  Country: JP (occurrence: JP)
  Receive Date: 20150727
  Receipt Date: 20150727
  Transmission Date: 20151125
  Serious: Yes (Hospitalization)
  Sender: FDA-Public Use
  Company Number: JP-ROCHE-1612718

PATIENT
  Age: 76 Year
  Sex: Female

DRUGS (5)
  1. GLAKAY [Concomitant]
     Active Substance: MENATETRENONE
     Indication: OSTEOPOROSIS
     Route: 048
     Dates: start: 20150609
  2. BAZEDOXIFENE ACETATE [Concomitant]
     Active Substance: BAZEDOXIFENE ACETATE
     Dosage: DOSAGE IS UNCERTAIN.?DRUG NAME WAS REPORTED AS VIVIANT
     Route: 065
  3. BONVIVA [Suspect]
     Active Substance: IBANDRONATE SODIUM
     Indication: OSTEOPOROSIS
     Dosage: ON 16/JUL/2015, THE PATIENT RECEIVED MOST RECENT DOSE OF IBANDRONIC ACID.
     Route: 042
     Dates: start: 20150616
  4. ONEALFA [Concomitant]
     Active Substance: ALFACALCIDOL
     Indication: OSTEOPOROSIS
     Route: 048
     Dates: start: 20150609
  5. ASPARA-CA [Concomitant]
     Active Substance: CALCIUM ASPARTATE
     Dosage: DOSAGE IS UNCERTAIN.
     Route: 065

REACTIONS (1)
  - Lumbar spinal stenosis [Recovered/Resolved with Sequelae]
